FAERS Safety Report 12200286 (Version 1)
Quarter: 2016Q1

REPORT INFORMATION
  Report Type: Spontaneous
  Country: US (occurrence: US)
  Receive Date: 20160322
  Receipt Date: 20160322
  Transmission Date: 20160526
  Serious: Yes (Life-Threatening, Hospitalization, Other)
  Sender: FDA-Public Use
  Company Number: US-ASTRAZENECA-2016SE28831

PATIENT
  Age: 855 Month
  Sex: Male
  Weight: 87.1 kg

DRUGS (11)
  1. CRESTOR [Suspect]
     Active Substance: ROSUVASTATIN CALCIUM
     Indication: BLOOD CHOLESTEROL ABNORMAL
     Route: 048
  2. DIOVAN [Concomitant]
     Active Substance: VALSARTAN
     Indication: BLOOD PRESSURE ABNORMAL
     Route: 048
  3. WARFARIN [Concomitant]
     Active Substance: WARFARIN
     Indication: ATRIAL FIBRILLATION
     Dosage: 2.5 DAILY
     Route: 048
     Dates: start: 201509
  4. PROBIOTIC [Concomitant]
     Active Substance: PROBIOTICS NOS
     Indication: DRUG INTOLERANCE
     Route: 048
     Dates: start: 201508
  5. PROAIR HFA [Concomitant]
     Active Substance: ALBUTEROL SULFATE
     Indication: ASTHMA
     Dosage: AS REQUIRED
     Route: 055
  6. DILTIAZEM HYDROCHLORIDE EXTENDED RELEASE [Concomitant]
     Active Substance: DILTIAZEM HYDROCHLORIDE
     Indication: HEART RATE INCREASED
     Route: 048
  7. PULMICORT TURBUHALER [Suspect]
     Active Substance: BUDESONIDE
     Indication: ASTHMA
     Route: 055
  8. SYMBICORT [Suspect]
     Active Substance: BUDESONIDE\FORMOTEROL FUMARATE DIHYDRATE
     Indication: ASTHMA
     Dosage: 160/4.5 UG, 2 PUFFS, TWO TIMES A DAY
     Route: 055
     Dates: start: 2008
  9. LASIX [Concomitant]
     Active Substance: FUROSEMIDE
     Indication: FLUID RETENTION
     Route: 048
     Dates: start: 201511
  10. DROSTANOLONE PROPRIONATE [Concomitant]
     Indication: ASTHMA
     Dosage: 50 MG, 2 SPRAYS DAILY
     Route: 045
  11. ALLOPURINOL. [Concomitant]
     Active Substance: ALLOPURINOL
     Indication: GOUT
     Route: 048
     Dates: start: 200908

REACTIONS (12)
  - Bronchospasm [Not Recovered/Not Resolved]
  - Myocardial infarction [Unknown]
  - Atrial fibrillation [Unknown]
  - Oxygen saturation decreased [Unknown]
  - Chronic kidney disease [Unknown]
  - Pulmonary oedema [Unknown]
  - Heart rate increased [Unknown]
  - Aortic arteriosclerosis [Unknown]
  - Respiratory syncytial virus infection [Unknown]
  - Dyspnoea [Unknown]
  - Cardiac failure congestive [Unknown]
  - Body height decreased [Unknown]

NARRATIVE: CASE EVENT DATE: 201508
